FAERS Safety Report 23065251 (Version 2)
Quarter: 2023Q4

REPORT INFORMATION
  Report Type: Spontaneous
  Country: JP (occurrence: JP)
  Receive Date: 20231013
  Receipt Date: 20231106
  Transmission Date: 20240109
  Serious: Yes (Other)
  Sender: FDA-Public Use
  Company Number: JP-Eisai-EC-2023-150399

PATIENT
  Age: 59 Year
  Sex: Male

DRUGS (5)
  1. LENVIMA [Suspect]
     Active Substance: LENVATINIB
     Indication: Clear cell renal cell carcinoma
     Route: 048
  2. LENVIMA [Suspect]
     Active Substance: LENVATINIB
     Route: 048
  3. KEYTRUDA [Suspect]
     Active Substance: PEMBROLIZUMAB
     Indication: Clear cell renal cell carcinoma
     Route: 041
  4. UNSPECIFIED INGREDIENT [Concomitant]
     Active Substance: UNSPECIFIED INGREDIENT
     Indication: Hypertension
     Dosage: ONE ANTIHYPERTENSIVE DRUG
     Route: 048
  5. URSODIOL [Concomitant]
     Active Substance: URSODIOL
     Indication: Immune-mediated hepatitis
     Route: 065

REACTIONS (7)
  - Immune-mediated hepatitis [Unknown]
  - Cerebral haemorrhage [Unknown]
  - Hypertension [Unknown]
  - Hypothyroidism [Unknown]
  - Pyrexia [Unknown]
  - Rash [Unknown]
  - Immune-mediated nephritis [Unknown]
